FAERS Safety Report 18261324 (Version 2)
Quarter: 2020Q4

REPORT INFORMATION
  Report Type: Report from Study
  Country: US (occurrence: US)
  Receive Date: 20200914
  Receipt Date: 20201028
  Transmission Date: 20210113
  Serious: No
  Sender: FDA-Public Use
  Company Number: US-SA-2020SA245082

PATIENT

DRUGS (19)
  1. FOLIC ACID. [Concomitant]
     Active Substance: FOLIC ACID
  2. METOPROLOL TARTRATE. [Concomitant]
     Active Substance: METOPROLOL TARTRATE
  3. HYDROCHLOROTHIAZIDE;OLMESARTAN [Concomitant]
  4. PREGABALIN. [Concomitant]
     Active Substance: PREGABALIN
  5. VIT D [Concomitant]
     Active Substance: VITAMIN D NOS
  6. DUPILUMAB [Suspect]
     Active Substance: DUPILUMAB
     Dosage: 300 MG, QOW
     Route: 058
     Dates: start: 20200609
  7. LYRICA [Concomitant]
     Active Substance: PREGABALIN
  8. FLUTICASONE. [Concomitant]
     Active Substance: FLUTICASONE
  9. JANUMET [Concomitant]
     Active Substance: METFORMIN HYDROCHLORIDE\SITAGLIPTIN PHOSPHATE
  10. HYDROXYZINE HCL [Concomitant]
     Active Substance: HYDROXYZINE HYDROCHLORIDE
  11. LEVOTHYROXIN [Concomitant]
     Active Substance: LEVOTHYROXINE
  12. MYRBETRIQ [Concomitant]
     Active Substance: MIRABEGRON
  13. OMEPRAZOLE. [Concomitant]
     Active Substance: OMEPRAZOLE
  14. DUPILUMAB [Suspect]
     Active Substance: DUPILUMAB
     Indication: DERMATITIS ATOPIC
     Dosage: 600 MG, 1X
     Route: 058
     Dates: start: 2020, end: 2020
  15. AMLODIPINE [Concomitant]
     Active Substance: AMLODIPINE BESYLATE
  16. BETAMETH DIPROPIONATE [Concomitant]
  17. MUPIROCIN. [Concomitant]
     Active Substance: MUPIROCIN
  18. TRIAMCINOLON [TRIAMCINOLONE] [Concomitant]
     Active Substance: TRIAMCINOLONE
  19. LOSARTAN. [Concomitant]
     Active Substance: LOSARTAN

REACTIONS (3)
  - Dermatitis atopic [Not Recovered/Not Resolved]
  - Eczema [Recovering/Resolving]
  - Eye pruritus [Recovering/Resolving]

NARRATIVE: CASE EVENT DATE: 2020
